FAERS Safety Report 22520205 (Version 1)
Quarter: 2023Q2

REPORT INFORMATION
  Report Type: Spontaneous
  Country: US (occurrence: None)
  Receive Date: 20230602
  Receipt Date: 20230602
  Transmission Date: 20230721
  Serious: Yes (Hospitalization)
  Sender: FDA-Public Use
  Company Number: None

PATIENT
  Age: 33 Year
  Sex: Female

DRUGS (11)
  1. DIMETHYL FUMARATE [Suspect]
     Active Substance: DIMETHYL FUMARATE
     Indication: Multiple sclerosis
     Route: 048
     Dates: start: 20200925
  2. ARMODAFINIL [Concomitant]
     Active Substance: ARMODAFINIL
  3. BACLOFEN [Concomitant]
     Active Substance: BACLOFEN
  4. BUPROPION [Concomitant]
  5. BUPROPION HYDROCHLORIDE [Concomitant]
     Active Substance: BUPROPION HYDROCHLORIDE
  6. BUSPIRONE [Concomitant]
     Active Substance: BUSPIRONE HYDROCHLORIDE
  7. GABAPENTIN [Concomitant]
     Active Substance: GABAPENTIN
  8. NAPROXEN [Concomitant]
     Active Substance: NAPROXEN
  9. PREDNISONE [Concomitant]
     Active Substance: PREDNISONE
  10. RIZATRIPTAN [Concomitant]
     Active Substance: RIZATRIPTAN
  11. VENLAFAXINE [Concomitant]

REACTIONS (1)
  - Hospitalisation [None]

NARRATIVE: CASE EVENT DATE: 20220622
